FAERS Safety Report 5395242-5 (Version None)
Quarter: 2007Q3

REPORT INFORMATION
  Report Type: 
  Country: None (occurrence: None)
  Receive Date: 20070724
  Receipt Date: 20070720
  Transmission Date: 20080115
  Serious: Yes (Death)
  Sender: FDA-Public Use
  Company Number: FR-BAYER-199900042BFR

PATIENT
  Age: 18 Year
  Sex: Male

DRUGS (7)
  1. TRASYLOL [Suspect]
     Indication: PREOPERATIVE CARE
     Route: 042
     Dates: start: 19991211, end: 19991211
  2. KEFANDOL [Concomitant]
     Indication: ANTIBIOTIC PROPHYLAXIS
     Route: 042
     Dates: start: 19991211, end: 19991211
  3. CEFAMANDOLE NAFATE SODIUM [Concomitant]
     Dates: start: 19991211, end: 19991211
  4. SODIUM [Concomitant]
     Dates: start: 19991211, end: 19991211
  5. DIPRIVAN [Concomitant]
     Indication: INDUCTION OF ANAESTHESIA
     Route: 042
     Dates: start: 19991211, end: 19991211
  6. SUFENTA [Concomitant]
     Indication: INDUCTION OF ANAESTHESIA
     Route: 042
     Dates: start: 19991211, end: 19991211
  7. TRACRIUM [Concomitant]
     Indication: INDUCTION OF ANAESTHESIA
     Route: 042
     Dates: start: 19991211, end: 19991211

REACTIONS (7)
  - ANAPHYLACTIC SHOCK [None]
  - CARDIAC FAILURE [None]
  - CARDIO-RESPIRATORY ARREST [None]
  - GENERALISED ERYTHEMA [None]
  - HYPOTENSION [None]
  - RASH PAPULAR [None]
  - VENTRICULAR FIBRILLATION [None]
